FAERS Safety Report 5318443-0 (Version None)
Quarter: 2007Q2

REPORT INFORMATION
  Report Type: 
  Country: None (occurrence: None)
  Receive Date: 20070430
  Receipt Date: 20070420
  Transmission Date: 20071010
  Serious: Yes (Death, Hospitalization, Other)
  Sender: FDA-Public Use
  Company Number: GXKR2007JP02590

PATIENT
  Age: 73 Year
  Sex: Male

DRUGS (15)
  1. RIFAMPICIN [Suspect]
     Indication: PERITONEAL TUBERCULOSIS
     Dosage: SEE IMAGE
     Route: 048
     Dates: start: 20070206, end: 20070306
  2. RIFAMPICIN [Suspect]
     Indication: PERITONEAL TUBERCULOSIS
     Dosage: SEE IMAGE
     Route: 048
     Dates: start: 20070313
  3. PYRAZINAMIDE [Concomitant]
  4. ETHAMBUTOL DIHYDROCHLORIDE (ETHAMBUTOL DIHYDROCHLORIDE) [Concomitant]
  5. ISONIAZID [Concomitant]
  6. AMLODIPINE BESYLATE [Concomitant]
  7. PYDOXAL (PYRIDOXAL PHOSPHATE) [Concomitant]
  8. NEORAL [Concomitant]
  9. SELBEX (TEPRENONE) [Concomitant]
  10. BERIZYM (ENZYMES NOS) [Concomitant]
  11. SENNARIDE (SENNOSIDE A+B) [Concomitant]
  12. RABEPRAZOLE SODIUM [Concomitant]
  13. ALLOPURINOL [Concomitant]
  14. BISACODYL (BISACODYL) [Concomitant]
  15. NAIXAN (NAPROXEN SODIUM) [Concomitant]

REACTIONS (13)
  - ANAEMIA [None]
  - ANOREXIA [None]
  - BLOOD THYROID STIMULATING HORMONE INCREASED [None]
  - CONVULSION [None]
  - DEHYDRATION [None]
  - DEMENTIA [None]
  - DEPRESSED LEVEL OF CONSCIOUSNESS [None]
  - HYPOTHYROIDISM [None]
  - MALAISE [None]
  - OEDEMA PERIPHERAL [None]
  - PSORIASIS [None]
  - RENAL FAILURE [None]
  - THYROXINE FREE DECREASED [None]
